FAERS Safety Report 6121521-X (Version None)
Quarter: 2009Q1

REPORT INFORMATION
  Report Type: 
  Country: None (occurrence: None)
  Receive Date: 20090317
  Receipt Date: 20090309
  Transmission Date: 20090719
  Serious: Yes (Death)
  Sender: FDA-Public Use
  Company Number: US-SANOFI-SYNTHELABO-A03200900557

PATIENT
  Sex: Female

DRUGS (4)
  1. AMBIEN [Suspect]
     Indication: INSOMNIA
     Route: 048
     Dates: start: 20031211
  2. XANAX [Concomitant]
     Indication: ANXIETY
     Route: 048
     Dates: start: 20041001
  3. TRILEPTAL [Concomitant]
     Indication: BIPOLAR DISORDER
     Route: 048
     Dates: start: 20050203
  4. CYMBALTA [Concomitant]
     Indication: DEPRESSION
     Route: 048
     Dates: start: 20050505

REACTIONS (1)
  - MYOCARDIAL INFARCTION [None]
